FAERS Safety Report 7048341-6 (Version None)
Quarter: 2010Q4

REPORT INFORMATION
  Report Type: 
  Country: None (occurrence: None)
  Receive Date: 20101015
  Receipt Date: 20101006
  Transmission Date: 20110411
  Serious: Yes (Death)
  Sender: FDA-Public Use
  Company Number: US-ROCHE-614988

PATIENT
  Sex: Female
  Weight: 46.7 kg

DRUGS (2)
  1. AVASTIN [Suspect]
     Dosage: 260 MG, Q21D
     Route: 065
     Dates: start: 20080102, end: 20081101
  2. ABRAXANE [Suspect]
     Dosage: UNK
     Route: 065
     Dates: start: 20080102, end: 20081101

REACTIONS (6)
  - ASCITES [None]
  - HEPATIC CIRRHOSIS [None]
  - HEPATIC FAILURE [None]
  - NEPHROTIC SYNDROME [None]
  - OEDEMA [None]
  - PORTAL HYPERTENSION [None]
